FAERS Safety Report 20175569 (Version 1)
Quarter: 2021Q4

REPORT INFORMATION
  Report Type: Report from Study
  Country: MX (occurrence: MX)
  Receive Date: 20211213
  Receipt Date: 20211213
  Transmission Date: 20220303
  Serious: Yes (Hospitalization)
  Sender: FDA-Public Use
  Company Number: MX-NOVARTISPH-NVSC2021MX280274

PATIENT
  Sex: Male
  Weight: 57 kg

DRUGS (2)
  1. IMATINIB [Suspect]
     Active Substance: IMATINIB
     Indication: Myeloid leukaemia
     Dosage: 4 DOSAGE FORM, QD
     Route: 065
  2. IMATINIB [Suspect]
     Active Substance: IMATINIB
     Dosage: 3 DOSAGE FORM, QD
     Route: 065

REACTIONS (10)
  - Haemorrhage [Unknown]
  - Full blood count abnormal [Unknown]
  - Swelling face [Unknown]
  - Fall [Unknown]
  - Swelling [Unknown]
  - Peripheral swelling [Unknown]
  - Vomiting [Unknown]
  - Depressed mood [Unknown]
  - Nausea [Unknown]
  - Feeding disorder [Unknown]
